FAERS Safety Report 7152693-6 (Version None)
Quarter: 2010Q4

REPORT INFORMATION
  Report Type: 
  Country: None (occurrence: None)
  Receive Date: 20101213
  Receipt Date: 20101203
  Transmission Date: 20110411
  Serious: No
  Sender: FDA-Public Use
  Company Number: US-JNJFOC-20101202346

PATIENT
  Sex: Male
  Weight: 84.37 kg

DRUGS (5)
  1. DURAGESIC-100 [Suspect]
     Indication: PAIN
     Route: 062
  2. NITROGLYCERIN [Concomitant]
     Indication: CARDIAC FLUTTER
     Route: 060
  3. OMEPRAZOLE [Concomitant]
     Indication: FLATULENCE
     Route: 048
  4. METOPROLOL [Concomitant]
     Indication: BLOOD PRESSURE
     Route: 048
  5. PLAVIX [Concomitant]
     Indication: ARTERIAL DISORDER
     Route: 048

REACTIONS (6)
  - DRUG DOSE OMISSION [None]
  - INAPPROPRIATE SCHEDULE OF DRUG ADMINISTRATION [None]
  - PAIN [None]
  - POOR QUALITY SLEEP [None]
  - PRODUCT PACKAGING QUANTITY ISSUE [None]
  - THERAPEUTIC RESPONSE DECREASED [None]
